FAERS Safety Report 8756425 (Version 2)
Quarter: 2012Q4

REPORT INFORMATION
  Report Type: Spontaneous
  Country: BE (occurrence: None)
  Receive Date: 20120814
  Receipt Date: 20120828
  Transmission Date: 20130627
  Serious: Yes (Death, Hospitalization)
  Sender: FDA-Public Use
  Company Number: 1378051

PATIENT
  Sex: Female

DRUGS (20)
  1. CARBOPLATIN [Suspect]
     Indication: GESTATIONAL TROPHOBLASTIC TUMOUR
  2. CARBOPLATIN [Suspect]
     Indication: METASTASIS
  3. METHOTREXATE [Suspect]
     Indication: GESTATIONAL TROPHOBLASTIC TUMOUR
     Route: 037
  4. METHOTREXATE [Suspect]
     Indication: GESTATIONAL TROPHOBLASTIC TUMOUR
     Route: 037
  5. METHOTREXATE [Suspect]
     Indication: GESTATIONAL TROPHOBLASTIC TUMOUR
     Route: 037
  6. METHOTREXATE [Suspect]
     Indication: GESTATIONAL TROPHOBLASTIC TUMOUR
     Route: 037
  7. CISPLATIN [Suspect]
     Route: 042
  8. ETOPOSIDE [Suspect]
     Route: 042
  9. ETOPOSIDE [Suspect]
     Route: 042
  10. ETOPOSIDE [Suspect]
     Route: 042
  11. ETOPOSIDE [Suspect]
     Route: 042
  12. METHOTREXATE [Suspect]
     Route: 042
  13. DACTINOMYCIN [Suspect]
     Dosage: Every two weeks
     Route: 042
  14. GLUCOSE [Concomitant]
  15. MAGNESIUM SULFATE [Concomitant]
  16. ONDANSETRON [Concomitant]
  17. SOLUMEDROL [Concomitant]
  18. UNSPECIFIED INGREDIENT [Concomitant]
  19. CALCIUM FOLINATE [Concomitant]
  20. ALLOPURINOL [Concomitant]

REACTIONS (2)
  - Endocarditis [None]
  - Sepsis [None]
